FAERS Safety Report 6695098-4 (Version None)
Quarter: 2010Q2

REPORT INFORMATION
  Report Type: 
  Country: None (occurrence: None)
  Receive Date: 20100423
  Receipt Date: 20100416
  Transmission Date: 20101027
  Serious: Yes (Other)
  Sender: FDA-Public Use
  Company Number: PHHY2010AU16534

PATIENT
  Age: 16 Year
  Sex: Male

DRUGS (3)
  1. RITALIN [Suspect]
     Indication: AUTISM
     Dosage: 20 MG, QD
     Route: 048
     Dates: start: 20090401
  2. CATAPRES [Concomitant]
     Indication: SLEEP DISORDER
     Dosage: UNK
     Route: 048
     Dates: start: 20090501
  3. ENDEP [Concomitant]
     Indication: AGGRESSION
     Dosage: 10 MG, TID
     Route: 048

REACTIONS (2)
  - SOMNOLENCE [None]
  - UNRESPONSIVE TO STIMULI [None]
